FAERS Safety Report 20659945 (Version 1)
Quarter: 2022Q1

REPORT INFORMATION
  Report Type: Spontaneous
  Country: US (occurrence: None)
  Receive Date: 20220331
  Receipt Date: 20220331
  Transmission Date: 20220423
  Serious: No
  Sender: FDA-Public Use
  Company Number: None

PATIENT
  Age: 72 Year
  Sex: Male
  Weight: 78.02 kg

DRUGS (5)
  1. INLYTA [Suspect]
     Active Substance: AXITINIB
     Indication: Bone cancer
     Dosage: FREQUENCY : EVERY 12 HOURS;?
     Route: 048
  2. ATENOLOL [Concomitant]
     Active Substance: ATENOLOL
  3. ATORVASTATIN [Concomitant]
     Active Substance: ATORVASTATIN
  4. IBUPROFEN [Concomitant]
     Active Substance: IBUPROFEN
  5. ISOSRBIDE [Concomitant]

REACTIONS (1)
  - Dehydration [None]

NARRATIVE: CASE EVENT DATE: 20220325
